FAERS Safety Report 7559642-7 (Version None)
Quarter: 2011Q2

REPORT INFORMATION
  Report Type: 
  Country: None (occurrence: None)
  Receive Date: 20110621
  Receipt Date: 20110617
  Transmission Date: 20111010
  Serious: No
  Sender: FDA-Public Use
  Company Number: US-ROXANE LABORATORIES, INC.-2011-RO-00692RO

PATIENT
  Sex: Male

DRUGS (1)
  1. FLUTICASONE PROPIONATE [Suspect]
     Indication: RHINITIS ALLERGIC
     Route: 045
     Dates: start: 20110501

REACTIONS (3)
  - DRUG INEFFECTIVE [None]
  - ASTHENIA [None]
  - BURNING SENSATION [None]
